FAERS Safety Report 25493883 (Version 1)
Quarter: 2025Q2

REPORT INFORMATION
  Report Type: Spontaneous
  Country: US (occurrence: US)
  Receive Date: 20250630
  Receipt Date: 20250630
  Transmission Date: 20250717
  Serious: Yes (Other)
  Sender: TERSERA THERAPEUTICS
  Company Number: US-TERSERA THERAPEUTICS LLC-2025TRS002404

PATIENT

DRUGS (3)
  1. ZICONOTIDE [Suspect]
     Active Substance: ZICONOTIDE
     Indication: Cancer pain
     Route: 037
  2. HYDROMORPHONE [Suspect]
     Active Substance: HYDROMORPHONE
     Indication: Cancer pain
     Route: 065
  3. BUPIVACAINE [Suspect]
     Active Substance: BUPIVACAINE
     Indication: Cancer pain
     Route: 065

REACTIONS (4)
  - Deafness unilateral [Unknown]
  - Visual impairment [Unknown]
  - Off label use [Unknown]
  - Product use issue [Unknown]
